FAERS Safety Report 7419299-2 (Version None)
Quarter: 2011Q2

REPORT INFORMATION
  Report Type: 
  Country: None (occurrence: None)
  Receive Date: 20110415
  Receipt Date: 20110414
  Transmission Date: 20111010
  Serious: Yes (Other)
  Sender: FDA-Public Use
  Company Number: DE-ABBOTT-11P-062-0705118-00

PATIENT
  Sex: Female
  Weight: 78 kg

DRUGS (1)
  1. HUMIRA [Suspect]
     Indication: RHEUMATOID ARTHRITIS
     Route: 058
     Dates: start: 20100816

REACTIONS (2)
  - LABORATORY TEST ABNORMAL [None]
  - PARKINSONISM [None]
